FAERS Safety Report 9313950 (Version 2)
Quarter: 2013Q2

REPORT INFORMATION
  Report Type: Spontaneous
  Country: ES (occurrence: ES)
  Receive Date: 20130529
  Receipt Date: 20130619
  Transmission Date: 20140414
  Serious: Yes (Other)
  Sender: FDA-Public Use
  Company Number: ES-AMGEN-ESPSP2013036037

PATIENT
  Sex: Female

DRUGS (1)
  1. PROLIA [Suspect]
     Indication: OSTEOPOROSIS
     Dosage: UNK
     Dates: start: 201209

REACTIONS (5)
  - Skin exfoliation [Recovering/Resolving]
  - Pruritus generalised [Not Recovered/Not Resolved]
  - Skin lesion [Unknown]
  - Skin discolouration [Recovering/Resolving]
  - Erythema [Unknown]
